FAERS Safety Report 9634007 (Version 1)
Quarter: 2013Q4

REPORT INFORMATION
  Report Type: Report from Study
  Country: US (occurrence: US)
  Receive Date: 20131021
  Receipt Date: 20131021
  Transmission Date: 20140711
  Serious: No
  Sender: FDA-Public Use
  Company Number: US-009507513-1310USA008926

PATIENT
  Sex: Female
  Weight: 89.34 kg

DRUGS (1)
  1. IMPLANON [Suspect]
     Dosage: UNK
     Route: 058
     Dates: start: 20130910, end: 20131017

REACTIONS (1)
  - Mood altered [Unknown]
